FAERS Safety Report 21160871 (Version 18)
Quarter: 2025Q2

REPORT INFORMATION
  Report Type: Report from Study
  Country: US (occurrence: US)
  Receive Date: 20220802
  Receipt Date: 20250519
  Transmission Date: 20250717
  Serious: Yes (Other)
  Sender: TAKEDA
  Company Number: US-TAKEDA-2022TUS051236

PATIENT
  Age: 42 Year
  Sex: Male

DRUGS (4)
  1. ADVATE [Suspect]
     Active Substance: ANTIHEMOPHILIC FACTOR, HUMAN RECOMBINANT
     Indication: Haemorrhage
  2. ADVATE [Suspect]
     Active Substance: ANTIHEMOPHILIC FACTOR, HUMAN RECOMBINANT
  3. ADVATE [Suspect]
     Active Substance: ANTIHEMOPHILIC FACTOR, HUMAN RECOMBINANT
  4. ADVATE [Suspect]
     Active Substance: ANTIHEMOPHILIC FACTOR, HUMAN RECOMBINANT
     Dosage: UNK, QD

REACTIONS (16)
  - Muscle haemorrhage [Not Recovered/Not Resolved]
  - Spontaneous haemorrhage [Recovered/Resolved]
  - Haemarthrosis [Recovered/Resolved]
  - Haemorrhage [Recovered/Resolved]
  - Haematoma [Recovering/Resolving]
  - Muscle strain [Recovered/Resolved]
  - Conjunctivochalasis [Unknown]
  - Musculoskeletal stiffness [Recovering/Resolving]
  - Musculoskeletal discomfort [Unknown]
  - Spinal disorder [Unknown]
  - Back pain [Not Recovered/Not Resolved]
  - COVID-19 [Recovering/Resolving]
  - Fall [Unknown]
  - Joint injury [Unknown]
  - Extra dose administered [Unknown]
  - Back injury [Recovered/Resolved]

NARRATIVE: CASE EVENT DATE: 20200928
